FAERS Safety Report 24771465 (Version 1)
Quarter: 2024Q4

REPORT INFORMATION
  Report Type: Spontaneous
  Country: US (occurrence: None)
  Receive Date: 20241222
  Receipt Date: 20241222
  Transmission Date: 20250115
  Serious: Yes (Disabling)
  Sender: Public
  Company Number: None

PATIENT
  Age: 51 Year
  Sex: Female
  Weight: 49.5 kg

DRUGS (1)
  1. ALLERGENIC EXTRACTS [Suspect]
     Active Substance: ALLERGENIC EXTRACTS

REACTIONS (3)
  - Mast cell activation syndrome [None]
  - Weight decreased [None]
  - Malnutrition [None]

NARRATIVE: CASE EVENT DATE: 20210520
